FAERS Safety Report 21329343 (Version 1)
Quarter: 2022Q3

REPORT INFORMATION
  Report Type: Spontaneous
  Country: US (occurrence: None)
  Receive Date: 20220913
  Receipt Date: 20220913
  Transmission Date: 20221027
  Serious: No
  Sender: FDA-Public Use
  Company Number: None

PATIENT
  Age: 57 Year
  Sex: Male
  Weight: 87 kg

DRUGS (1)
  1. NIRMATRELVIR\RITONAVIR [Suspect]
     Active Substance: NIRMATRELVIR\RITONAVIR
     Indication: Immunisation
     Dosage: OTHER QUANTITY : 150MG/100MG;?FREQUENCY : TWICE A DAY;?
     Route: 048
     Dates: start: 20220812, end: 20220815

REACTIONS (5)
  - Abdominal discomfort [None]
  - Diarrhoea [None]
  - Vomiting [None]
  - Nausea [None]
  - Therapy cessation [None]

NARRATIVE: CASE EVENT DATE: 20220815
